FAERS Safety Report 8777732 (Version 2)
Quarter: 2012Q4

REPORT INFORMATION
  Report Type: 
  Country: AU (occurrence: AU)
  Receive Date: 20120911
  Receipt Date: 20121029
  Transmission Date: 20130627
  Serious: Yes (Other)
  Sender: FDA-Public Use
  Company Number: PHHY2012AU078588

PATIENT
  Age: 52 Year
  Sex: Female

DRUGS (2)
  1. ACLASTA [Suspect]
     Indication: OSTEOPOROSIS
     Dosage: 5 mg, UNK
     Route: 042
     Dates: start: 20110907
  2. PLAQUENIL [Concomitant]
     Dosage: 200 mg, BID

REACTIONS (7)
  - Perineurial cyst [Recovering/Resolving]
  - Back pain [Recovering/Resolving]
  - Dermatomyositis [Recovering/Resolving]
  - Ocular hyperaemia [Recovered/Resolved]
  - Eye pain [Unknown]
  - Lacrimation increased [Unknown]
  - Arthralgia [Recovered/Resolved]
